FAERS Safety Report 20579199 (Version 1)
Quarter: 2022Q1

REPORT INFORMATION
  Report Type: Report from Study
  Country: US (occurrence: US)
  Receive Date: 20220310
  Receipt Date: 20220310
  Transmission Date: 20220423
  Serious: No
  Sender: FDA-Public Use
  Company Number: US-NOVARTISTESTPH-NVSC2022US055725

PATIENT
  Sex: Female

DRUGS (4)
  1. KESIMPTA [Suspect]
     Active Substance: OFATUMUMAB
     Indication: Multiple sclerosis
     Dosage: 20 MG, QW, WEEK 0, WEEK 1 AND WEEK 2 AS DIRECTED.
     Route: 058
  2. VITAMIN D3 [Concomitant]
     Active Substance: CHOLECALCIFEROL
     Indication: Product used for unknown indication
     Dosage: UNK
     Route: 065
  3. HERBALS\TURMERIC [Concomitant]
     Active Substance: HERBALS\TURMERIC
     Indication: Product used for unknown indication
     Dosage: UNK
     Route: 065
  4. Q-10 CO-ENZYME [Concomitant]
     Indication: Product used for unknown indication
     Dosage: UNK
     Route: 065

REACTIONS (6)
  - Insomnia [Unknown]
  - Constipation [Unknown]
  - Arthralgia [Unknown]
  - Pain [Unknown]
  - Headache [Unknown]
  - Oropharyngeal pain [Unknown]
